FAERS Safety Report 19584290 (Version 3)
Quarter: 2021Q4

REPORT INFORMATION
  Report Type: Spontaneous
  Country: JP (occurrence: JP)
  Receive Date: 20210720
  Receipt Date: 20211007
  Transmission Date: 20220303
  Serious: Yes (Death, Hospitalization, Other)
  Sender: FDA-Public Use
  Company Number: JP-MSD-M2021-17279

PATIENT
  Age: 54 Year
  Sex: Male

DRUGS (1)
  1. KEYTRUDA [Suspect]
     Active Substance: PEMBROLIZUMAB
     Indication: Tongue neoplasm malignant stage unspecified
     Dosage: 200 MILLIGRAM, Q3W
     Route: 041
     Dates: start: 202103, end: 202103

REACTIONS (3)
  - Infectious pleural effusion [Fatal]
  - Pneumonia [Fatal]
  - Face oedema [Recovering/Resolving]

NARRATIVE: CASE EVENT DATE: 20210401
